FAERS Safety Report 18770876 (Version 1)
Quarter: 2021Q1

REPORT INFORMATION
  Report Type: Report from Study
  Country: None (occurrence: IL)
  Receive Date: 20210122
  Receipt Date: 20210122
  Transmission Date: 20210419
  Serious: Yes (Other)
  Sender: FDA-Public Use
  Company Number: IL-ABBVIE-20K-082-3558050-00

PATIENT
  Age: 43 Year
  Sex: Female

DRUGS (1)
  1. HUMIRA [Suspect]
     Active Substance: ADALIMUMAB
     Indication: CROHN^S DISEASE
     Route: 058
     Dates: start: 20200705, end: 202011

REACTIONS (8)
  - Clostridium difficile colitis [Recovering/Resolving]
  - Asthenia [Unknown]
  - Malaise [Unknown]
  - Loss of consciousness [Recovered/Resolved]
  - Diarrhoea haemorrhagic [Recovering/Resolving]
  - Drug ineffective [Unknown]
  - Asthenia [Recovered/Resolved]
  - Drug specific antibody present [Unknown]

NARRATIVE: CASE EVENT DATE: 2020
